FAERS Safety Report 6536150-3 (Version None)
Quarter: 2010Q1

REPORT INFORMATION
  Report Type: 
  Country: None (occurrence: None)
  Receive Date: 20100113
  Receipt Date: 20091021
  Transmission Date: 20100710
  Serious: No
  Sender: FDA-Public Use
  Company Number: US-ALLERGAN-0914636US

PATIENT
  Age: 49 Year
  Sex: Female

DRUGS (1)
  1. LATISSE [Suspect]
     Indication: GROWTH OF EYELASHES
     Dosage: 3 GTT, QHS
     Route: 061

REACTIONS (6)
  - BURNING SENSATION [None]
  - DRUG ADMINISTRATION ERROR [None]
  - DRY SKIN [None]
  - ERYTHEMA OF EYELID [None]
  - PRURITUS [None]
  - SKIN HYPERPIGMENTATION [None]
